FAERS Safety Report 5008081-1 (Version None)
Quarter: 2006Q2

REPORT INFORMATION
  Report Type: 
  Country: None (occurrence: None)
  Receive Date: 20060404
  Receipt Date: 20051011
  Transmission Date: 20061013
  Serious: Yes (Other)
  Sender: FDA-Public Use
  Company Number: 2005091271

PATIENT
  Sex: Female

DRUGS (3)
  1. GEODON [Suspect]
     Indication: BIPOLAR DISORDER
     Dosage: 160 MG (80 MG, 2 IN 1 D)
     Dates: start: 20050727, end: 20050802
  2. ZOLOFT [Suspect]
     Indication: ILL-DEFINED DISORDER
  3. TOPAMAX [Concomitant]

REACTIONS (5)
  - AGITATION [None]
  - DYSTONIA [None]
  - HYPERSENSITIVITY [None]
  - INSOMNIA [None]
  - MANIA [None]
